FAERS Safety Report 5244812-3 (Version None)
Quarter: 2007Q1

REPORT INFORMATION
  Report Type: 
  Country: None (occurrence: None)
  Receive Date: 20070216
  Receipt Date: 20070205
  Transmission Date: 20070707
  Serious: Yes (Hospitalization)
  Sender: FDA-Public Use
  Company Number: GXKR2007CH01392

PATIENT
  Age: 66 Year
  Sex: Male

DRUGS (11)
  1. TRAMADOL HCL [Suspect]
     Indication: BACK PAIN
     Dosage: ORAL
     Route: 048
  2. MIRTAZAPINE [Suspect]
     Indication: SLEEP DISORDER
     Dosage: 30 MG, QD,
  3. ESOMEPRAZOLE MAGNESIUM [Concomitant]
  4. PROPRANOLOL [Concomitant]
  5. DICLOFENAC SODIUM [Concomitant]
  6. ACETAMINOPHEN [Concomitant]
  7. TRIAMCINOLONE [Concomitant]
  8. AMISULPRIDE [Concomitant]
  9. BROMAZEPAM [Concomitant]
  10. ALPRAZOLAM [Concomitant]
  11. VITAMIN B-COMPLEX (NO INGREDIENTS/SUBSTANCES) [Concomitant]

REACTIONS (11)
  - ABNORMAL BEHAVIOUR [None]
  - BRADYPHRENIA [None]
  - CONFUSIONAL STATE [None]
  - DELIRIUM [None]
  - DISORIENTATION [None]
  - DISTURBANCE IN ATTENTION [None]
  - DRUG INTERACTION [None]
  - DYSARTHRIA [None]
  - GAIT DISTURBANCE [None]
  - HALLUCINATIONS, MIXED [None]
  - OVERDOSE [None]
